FAERS Safety Report 24913417 (Version 1)
Quarter: 2025Q1

REPORT INFORMATION
  Report Type: Spontaneous
  Country: CN (occurrence: CN)
  Receive Date: 20250201
  Receipt Date: 20250201
  Transmission Date: 20250409
  Serious: Yes (Life-Threatening, Hospitalization)
  Sender: ACCORD
  Company Number: CN-MLMSERVICE-20250116-PI361312-00232-9

PATIENT
  Age: 41 Month
  Sex: Female

DRUGS (2)
  1. MYCOPHENOLATE MOFETIL [Suspect]
     Active Substance: MYCOPHENOLATE MOFETIL
     Indication: Immunosuppressant drug therapy
     Dosage: DISPERSIBLE TABLETS: 125 MG, 1/12 H WAS REDUCED AND SUBSEQUENTLY DISCONTINUED
  2. TACROLIMUS [Suspect]
     Active Substance: TACROLIMUS
     Indication: Immunosuppressant drug therapy
     Dosage: TACROLIMUS CAPSULES: 0.75 MG, 1/24 H, WAS REDUCED AND SUBSEQUENTLY DISCONTINUED

REACTIONS (4)
  - Burkitt^s lymphoma [Recovering/Resolving]
  - Epstein-Barr virus associated lymphoproliferative disorder [Recovering/Resolving]
  - Seizure [Recovering/Resolving]
  - Pneumatosis intestinalis [Recovering/Resolving]
